FAERS Safety Report 6993535-9 (Version None)
Quarter: 2010Q3

REPORT INFORMATION
  Report Type: 
  Country: None (occurrence: None)
  Receive Date: 20100917
  Receipt Date: 20100629
  Transmission Date: 20110219
  Serious: No
  Sender: FDA-Public Use
  Company Number: US-ASTRAZENECA-2010SE30272

PATIENT
  Age: 33 Year
  Sex: Male

DRUGS (2)
  1. SEROQUEL [Suspect]
     Indication: BIPOLAR DISORDER
     Route: 048
     Dates: start: 20090101, end: 20100625
  2. SEROQUEL [Suspect]
     Indication: MIGRAINE
     Route: 048
     Dates: start: 20090101, end: 20100625

REACTIONS (3)
  - DRUG DOSE OMISSION [None]
  - FEELING ABNORMAL [None]
  - INSOMNIA [None]
